FAERS Safety Report 6092084-2 (Version None)
Quarter: 2009Q1

REPORT INFORMATION
  Report Type: 
  Country: None (occurrence: None)
  Receive Date: 20090225
  Receipt Date: 20090213
  Transmission Date: 20090719
  Serious: Yes (Other)
  Sender: FDA-Public Use
  Company Number: JP-PFIZER INC-2009165786

PATIENT

DRUGS (5)
  1. ZYVOX [Suspect]
     Indication: STAPHYLOCOCCAL INFECTION
     Dosage: 600 MG, 2X/DAY
     Route: 042
     Dates: start: 20090116, end: 20090122
  2. AMINO ACIDS/CARBOHYDRATES/MINERALS/VITAMINS, [Concomitant]
     Route: 042
  3. MINERAL TAB [Concomitant]
     Route: 042
  4. SODIUM CHLORIDE [Concomitant]
     Route: 042
  5. INTRALIPID 10% [Concomitant]
     Route: 042

REACTIONS (1)
  - HYPOGLYCAEMIA [None]
